FAERS Safety Report 5047700-0 (Version None)
Quarter: 2006Q3

REPORT INFORMATION
  Report Type: 
  Country: None (occurrence: None)
  Receive Date: 20060706
  Receipt Date: 20060706
  Transmission Date: 20061208
  Serious: Yes (Other)
  Sender: FDA-Public Use
  Company Number: None

PATIENT
  Age: 56 Year
  Sex: Female
  Weight: 73.9363 kg

DRUGS (3)
  1. OXYCONTIN [Suspect]
     Indication: BACK PAIN
     Dosage: PO Q12 HRS
     Route: 048
  2. OXYCONTIN [Suspect]
     Indication: NEUROPATHY
     Dosage: PO Q12 HRS
     Route: 048
  3. OXYCONTIN [Suspect]
     Indication: PAIN IN EXTREMITY
     Dosage: PO Q12 HRS
     Route: 048

REACTIONS (3)
  - DRUG INEFFECTIVE [None]
  - INADEQUATE ANALGESIA [None]
  - THERAPEUTIC RESPONSE UNEXPECTED WITH DRUG SUBSTITUTION [None]
